FAERS Safety Report 9234645 (Version 2)
Quarter: 2013Q3

REPORT INFORMATION
  Report Type: Report from Study
  Country: NL (occurrence: NL)
  Receive Date: 20130416
  Receipt Date: 20130822
  Transmission Date: 20140515
  Serious: Yes (Hospitalization)
  Sender: FDA-Public Use
  Company Number: NL-ABBOTT-13P-114-1076007-00

PATIENT
  Age: 80 Year
  Sex: Male
  Weight: 101 kg

DRUGS (2)
  1. LUCRIN DEPOT [Suspect]
     Indication: PROSTATE CANCER
     Route: 058
     Dates: start: 20120423
  2. PERINDOPRIL [Concomitant]
     Indication: BLOOD PRESSURE DECREASED
     Route: 048
     Dates: start: 201304

REACTIONS (2)
  - Calculus bladder [Recovered/Resolved]
  - Cerebral infarction [Recovered/Resolved]
